FAERS Safety Report 4305609-1 (Version None)
Quarter: 2004Q1

REPORT INFORMATION
  Report Type: 
  Country: None (occurrence: None)
  Receive Date: 20040226
  Receipt Date: 20031211
  Transmission Date: 20041129
  Serious: No
  Sender: FDA-Public Use
  Company Number: US-BRISTOL-MYERS SQUIBB COMPANY-12456885

PATIENT
  Age: 11 Year
  Sex: Female

DRUGS (3)
  1. ABILIFY [Suspect]
     Dates: start: 20031101
  2. DEPAKOTE [Concomitant]
  3. LITHIUM CARBONATE [Concomitant]

REACTIONS (1)
  - VISION BLURRED [None]
